FAERS Safety Report 4306955-8 (Version None)
Quarter: 2004Q1

REPORT INFORMATION
  Report Type: 
  Country: None (occurrence: None)
  Receive Date: 20040225
  Receipt Date: 20040129
  Transmission Date: 20041129
  Serious: Yes (Life-Threatening, Hospitalization)
  Sender: FDA-Public Use
  Company Number: JP_031202417

PATIENT
  Age: 63 Year
  Sex: Male
  Weight: 53 kg

DRUGS (13)
  1. ZYPREXA [Suspect]
     Indication: SCHIZOPHRENIA, PARANOID TYPE
     Dosage: 5 MG/DAY
     Dates: start: 20021029
  2. VITAMIN A [Concomitant]
  3. VEGETAMIN B [Concomitant]
  4. TINELAC (SENNOSIDE A+B) [Concomitant]
  5. UNIPHYL [Concomitant]
  6. ALOSENN [Concomitant]
  7. RUEFRIEN [Concomitant]
  8. ROHYPNOL(FLUNITRAZEPAM) [Concomitant]
  9. TASMOLIN(BIPERIDEN) [Concomitant]
  10. DEPAS (ETIZOLAM) [Concomitant]
  11. BROTIZOLAM [Concomitant]
  12. EMILACE (NEMONAPRIDE) [Concomitant]
  13. ZOTEPINE [Concomitant]

REACTIONS (9)
  - DELUSION [None]
  - DEPRESSED LEVEL OF CONSCIOUSNESS [None]
  - DIZZINESS [None]
  - HALLUCINATION, AUDITORY [None]
  - INSOMNIA [None]
  - PNEUMONIA [None]
  - SOMNOLENCE [None]
  - STUPOR [None]
  - SUICIDE ATTEMPT [None]
